FAERS Safety Report 17592400 (Version 1)
Quarter: 2020Q1

REPORT INFORMATION
  Report Type: Spontaneous
  Country: US (occurrence: US)
  Receive Date: 20200327
  Receipt Date: 20200327
  Transmission Date: 20200409
  Serious: No
  Sender: FDA-Public Use
  Company Number: US-ELI_LILLY_AND_COMPANY-US202003003223

PATIENT
  Age: 41 Year
  Sex: Male

DRUGS (1)
  1. EMGALITY [Suspect]
     Active Substance: GALCANEZUMAB-GNLM
     Indication: MIGRAINE
     Dosage: 240 MG

REACTIONS (5)
  - Myalgia [Unknown]
  - Contusion [Recovering/Resolving]
  - Asthma [Unknown]
  - Limb discomfort [Unknown]
  - Hypersensitivity [Unknown]
